FAERS Safety Report 6485278-5 (Version None)
Quarter: 2009Q4

REPORT INFORMATION
  Report Type: 
  Country: None (occurrence: None)
  Receive Date: 20091209
  Receipt Date: 20091202
  Transmission Date: 20100525
  Serious: Yes (Other)
  Sender: FDA-Public Use
  Company Number: GB-MERCK-0912GBR00008

PATIENT
  Age: 85 Year
  Sex: Male

DRUGS (3)
  1. SINGULAIR [Suspect]
     Indication: ASTHMA
     Route: 048
     Dates: start: 20090201, end: 20090401
  2. BUDESONIDE AND FORMOTEROL FUMARATE [Concomitant]
     Route: 065
  3. TERBUTALINE SULFATE [Concomitant]
     Route: 065

REACTIONS (2)
  - CHANGE OF BOWEL HABIT [None]
  - DIARRHOEA [None]
